FAERS Safety Report 24310325 (Version 1)
Quarter: 2024Q3

REPORT INFORMATION
  Report Type: Report from Study
  Country: CA (occurrence: CA)
  Receive Date: 20240912
  Receipt Date: 20240912
  Transmission Date: 20241017
  Serious: Yes (Hospitalization)
  Sender: RECORDATI
  Company Number: CA-RECORDATI RARE DISEASES-2024006951

PATIENT

DRUGS (1)
  1. CARBAGLU [Suspect]
     Active Substance: CARGLUMIC ACID
     Indication: Carbamoyl phosphate synthetase deficiency
     Dosage: 130 MILLIGRAM/KILOGRAM, QD (ONCE DAILY)
     Dates: start: 20240616

REACTIONS (1)
  - Hospitalisation [Unknown]

NARRATIVE: CASE EVENT DATE: 20240101
